FAERS Safety Report 8242082-5 (Version None)
Quarter: 2012Q1

REPORT INFORMATION
  Report Type: 
  Country: None (occurrence: None)
  Receive Date: 20120329
  Receipt Date: 20120321
  Transmission Date: 20120608
  Serious: No
  Sender: FDA-Public Use
  Company Number: US-BIOGENIDEC-2012BI010148

PATIENT
  Age: 53 Year
  Sex: Female

DRUGS (1)
  1. AVONEX [Suspect]
     Indication: MULTIPLE SCLEROSIS
     Route: 030
     Dates: start: 20110909

REACTIONS (6)
  - FEELING ABNORMAL [None]
  - INSOMNIA [None]
  - NASOPHARYNGITIS [None]
  - SINUSITIS [None]
  - LYMPHADENOPATHY [None]
  - FATIGUE [None]
